FAERS Safety Report 9124240 (Version 1)
Quarter: 2013Q1

REPORT INFORMATION
  Report Type: Spontaneous
  Country: US (occurrence: US)
  Receive Date: 20130227
  Receipt Date: 20130227
  Transmission Date: 20140127
  Serious: Yes (Death)
  Sender: FDA-Public Use
  Company Number: US-ROCHE-1194056

PATIENT
  Age: 33 Year
  Sex: Female

DRUGS (8)
  1. CLONAZEPAM [Suspect]
     Indication: PRODUCT USED FOR UNKNOWN INDICATION
     Route: 048
  2. CLONAZEPAM [Suspect]
     Dosage: OVERDOSE
     Route: 048
  3. BUPROPION [Suspect]
     Indication: PRODUCT USED FOR UNKNOWN INDICATION
     Route: 048
  4. BUPROPION [Suspect]
     Dosage: OVERDOSE
     Route: 048
  5. DULOXETINE [Suspect]
     Indication: PRODUCT USED FOR UNKNOWN INDICATION
     Route: 048
  6. DULOXETINE [Suspect]
     Dosage: OVERDOSE
     Route: 048
  7. LEVOTHYROXINE [Suspect]
     Indication: PRODUCT USED FOR UNKNOWN INDICATION
     Route: 048
  8. LEVOTHYROXINE [Suspect]
     Dosage: OVERDOSE
     Route: 048

REACTIONS (3)
  - Toxicity to various agents [Fatal]
  - Cardiac arrest [Fatal]
  - Respiratory arrest [Fatal]
